FAERS Safety Report 17870713 (Version 1)
Quarter: 2020Q2

REPORT INFORMATION
  Report Type: Spontaneous
  Country: US (occurrence: US)
  Receive Date: 20200607
  Receipt Date: 20200607
  Transmission Date: 20200714
  Serious: Yes (Other)
  Sender: FDA-Public Use
  Company Number: None

PATIENT
  Age: 46 Year
  Sex: Female
  Weight: 81 kg

DRUGS (6)
  1. HIGH DOSE VITAMIN D [Concomitant]
  2. BENICAR [Concomitant]
     Active Substance: OLMESARTAN MEDOXOMIL
  3. PLAQUENIL [Concomitant]
     Active Substance: HYDROXYCHLOROQUINE SULFATE
  4. DEPO-PROVERA [Concomitant]
     Active Substance: MEDROXYPROGESTERONE ACETATE
  5. ESTROGEN [Concomitant]
     Active Substance: ESTROGENS
  6. EMEND [Suspect]
     Active Substance: APREPITANT
     Indication: PROPHYLAXIS OF NAUSEA AND VOMITING
     Dosage: ?          QUANTITY:1 TABLET(S);OTHER FREQUENCY:BEFORE SURGERY;?
     Route: 048
     Dates: start: 20200316, end: 20200316

REACTIONS (6)
  - Vaginal haemorrhage [None]
  - Affective disorder [None]
  - Muscle spasms [None]
  - Premenstrual syndrome [None]
  - Fatigue [None]
  - Flatulence [None]

NARRATIVE: CASE EVENT DATE: 20200316
